FAERS Safety Report 11629751 (Version 1)
Quarter: 2015Q4

REPORT INFORMATION
  Report Type: Spontaneous
  Country: BR (occurrence: BR)
  Receive Date: 20151014
  Receipt Date: 20151014
  Transmission Date: 20160304
  Serious: Yes (Life-Threatening, Other)
  Sender: FDA-Public Use
  Company Number: PHHY2015BR123137

PATIENT
  Age: 76 Year
  Sex: Female

DRUGS (2)
  1. CITALOPRAM [Suspect]
     Active Substance: CITALOPRAM HYDROBROMIDE
     Indication: DEPRESSION
     Dosage: 20 MG, QD
     Route: 065
  2. LORAZEPAN [Concomitant]
     Active Substance: LORAZEPAM
     Indication: NERVOUSNESS
     Dosage: 2 MG, UNK
     Route: 065

REACTIONS (6)
  - Social avoidant behaviour [Unknown]
  - Urinary tract infection [Unknown]
  - Immune system disorder [Unknown]
  - Alopecia [Unknown]
  - Feeling abnormal [Unknown]
  - Drug ineffective [Unknown]
